FAERS Safety Report 10154856 (Version 1)
Quarter: 2014Q2

REPORT INFORMATION
  Report Type: Spontaneous
  Country: US (occurrence: US)
  Receive Date: 20140506
  Receipt Date: 20140506
  Transmission Date: 20141212
  Serious: No
  Sender: FDA-Public Use
  Company Number: US-BAYER-2014-066441

PATIENT
  Sex: Female

DRUGS (1)
  1. GADAVIST [Suspect]
     Indication: FIBROMATOSIS
     Dosage: 3 ML, ONCE
     Route: 042
     Dates: start: 20140501, end: 20140501

REACTIONS (4)
  - Throat irritation [None]
  - Cough [None]
  - Flushing [None]
  - Oropharyngeal pain [None]
